FAERS Safety Report 11451823 (Version 1)
Quarter: 2015Q3

REPORT INFORMATION
  Report Type: Spontaneous
  Country: US (occurrence: None)
  Receive Date: 20150902
  Receipt Date: 20150902
  Transmission Date: 20151125
  Serious: No
  Sender: FDA-Public Use
  Company Number: None

PATIENT
  Age: 60 Year
  Sex: Female

DRUGS (22)
  1. SPIRONOLACTONE. [Concomitant]
     Active Substance: SPIRONOLACTONE
  2. OSTEO-BIFLEX JOINT HEALTH TRIPLE STRENGTH INCLUDES GLUCOSAMINE HCL [Concomitant]
  3. PIOGLITAZONE. [Suspect]
     Active Substance: PIOGLITAZONE
  4. AMIODARONE [Concomitant]
     Active Substance: AMIODARONE
  5. ONE A DAY WOMEN^S VITAMIN 50+ [Concomitant]
  6. METFORMIN HCL [Concomitant]
     Active Substance: METFORMIN HYDROCHLORIDE
  7. VICTOZA [Concomitant]
     Active Substance: LIRAGLUTIDE
  8. AMIODARONE HCL [Concomitant]
     Active Substance: AMIODARONE HYDROCHLORIDE
  9. BOSWELLIA SERRATA EXTRACT (RESIN) [Concomitant]
  10. COENZYME Q10 [Concomitant]
     Active Substance: UBIDECARENONE
  11. JANUVIA [Suspect]
     Active Substance: SITAGLIPTIN PHOSPHATE
  12. CYMBALTA [Concomitant]
     Active Substance: DULOXETINE HYDROCHLORIDE
  13. CHONDROITIN/MSM COMPLEX [Concomitant]
  14. CRESTOR [Concomitant]
     Active Substance: ROSUVASTATIN CALCIUM
  15. TRAMADOL HCL [Concomitant]
     Active Substance: TRAMADOL HYDROCHLORIDE
  16. FLONASE [Concomitant]
     Active Substance: FLUTICASONE PROPIONATE
  17. ELIQUIS [Concomitant]
     Active Substance: APIXABAN
  18. META MUCIL FIBER [Concomitant]
  19. CARVDILOLO [Concomitant]
  20. LISINOPRIL. [Concomitant]
     Active Substance: LISINOPRIL
  21. TYLENOL ARTHRITIS PAIN [Concomitant]
     Active Substance: ACETAMINOPHEN
  22. 5HTP [Concomitant]

REACTIONS (1)
  - Arthralgia [None]
